FAERS Safety Report 6115872-2 (Version None)
Quarter: 2009Q1

REPORT INFORMATION
  Report Type: 
  Country: None (occurrence: None)
  Receive Date: 20090311
  Receipt Date: 20090224
  Transmission Date: 20090719
  Serious: No
  Sender: FDA-Public Use
  Company Number: SPI200900070

PATIENT
  Sex: Female

DRUGS (1)
  1. AMITIZA [Suspect]
     Indication: DRUG USE FOR UNKNOWN INDICATION
     Dosage: 8 MCG, BID, ORAL
     Route: 048

REACTIONS (1)
  - DYSPNOEA [None]
